FAERS Safety Report 17430672 (Version 2)
Quarter: 2020Q2

REPORT INFORMATION
  Report Type: Report from Study
  Country: IT (occurrence: IT)
  Receive Date: 20200218
  Receipt Date: 20200511
  Transmission Date: 20200713
  Serious: Yes (Other)
  Sender: FDA-Public Use
  Company Number: IT-MYLANLABS-2020M1016521

PATIENT
  Age: 52 Year
  Sex: Male

DRUGS (8)
  1. GABAPENTINE MYLAN 100 MG, CAPSULE, HARD [Suspect]
     Active Substance: GABAPENTIN
     Indication: PRODUCT USED FOR UNKNOWN INDICATION
     Dosage: 300 MILLIGRAM, TOTAL
     Route: 048
     Dates: start: 20190818, end: 20190818
  2. METHADONE HYDROCHLORIDE. [Concomitant]
     Active Substance: METHADONE HYDROCHLORIDE
     Dosage: 30 MILLIGRAM, QD
  3. TAVOR (LORAZEPAM) [Concomitant]
     Active Substance: LORAZEPAM
     Dosage: UNK
  4. RIFACOL [Concomitant]
     Active Substance: RIFAXIMIN
     Dosage: 400 MILLIGRAM, QD
  5. INVEGA [Concomitant]
     Active Substance: PALIPERIDONE
     Dosage: UNK
  6. RIVOTRIL [Suspect]
     Active Substance: CLONAZEPAM
     Indication: PRODUCT USED FOR UNKNOWN INDICATION
     Dosage: 8 MILLIGRAM, TOTAL
     Dates: start: 20190818, end: 20190818
  7. PARIET [Concomitant]
     Active Substance: RABEPRAZOLE SODIUM
     Dosage: UNK
  8. NOZINAN                            /00038601/ [Concomitant]
     Active Substance: LEVOMEPROMAZINE
     Dosage: UNK

REACTIONS (4)
  - Dysarthria [Recovering/Resolving]
  - Drug abuse [Unknown]
  - Sopor [Recovering/Resolving]
  - Suicide attempt [Recovering/Resolving]

NARRATIVE: CASE EVENT DATE: 20190818
